FAERS Safety Report 26139602 (Version 1)
Quarter: 2025Q4

REPORT INFORMATION
  Report Type: Spontaneous
  Country: US (occurrence: None)
  Receive Date: 20251209
  Receipt Date: 20251209
  Transmission Date: 20260117
  Serious: No
  Sender: FDA-CTU
  Company Number: None

PATIENT
  Age: 68 Year
  Sex: Female

DRUGS (1)
  1. EBGLYSS [Suspect]
     Active Substance: LEBRIKIZUMAB-LBKZ
     Dosage: FREQUENCY : MONTHLY;
     Route: 058
     Dates: start: 202410

REACTIONS (3)
  - Dry eye [None]
  - Visual impairment [None]
  - Condition aggravated [None]

NARRATIVE: CASE EVENT DATE: 20251111
